FAERS Safety Report 18654852 (Version 1)
Quarter: 2020Q4

REPORT INFORMATION
  Report Type: Spontaneous
  Country: US (occurrence: US)
  Receive Date: 20201223
  Receipt Date: 20201223
  Transmission Date: 20210114
  Serious: Yes (Hospitalization, Other)
  Sender: FDA-Public Use
  Company Number: US-009507513-1909USA003960

PATIENT
  Sex: Male
  Weight: 93.61 kg

DRUGS (3)
  1. STERILE DILUENT (WATER) [Suspect]
     Active Substance: WATER
     Indication: PROPHYLAXIS
     Dosage: UNK
     Route: 058
     Dates: start: 20170202, end: 20170202
  2. LYRICA [Concomitant]
     Active Substance: PREGABALIN
     Indication: NEUROPATHY PERIPHERAL
     Dosage: 75 MG CAPSULES, UNK
     Route: 048
     Dates: start: 2014
  3. ZOSTAVAX [Suspect]
     Active Substance: VARICELLA-ZOSTER VIRUS STRAIN OKA/MERCK LIVE ANTIGEN
     Indication: PROPHYLAXIS
     Route: 058
     Dates: start: 20170202

REACTIONS (12)
  - Herpes zoster [Recovered/Resolved]
  - Arthropod bite [Unknown]
  - Hyperlipidaemia [Unknown]
  - Cardiac disorder [Unknown]
  - Hypertension [Not Recovered/Not Resolved]
  - Wound [Unknown]
  - Eye operation [Unknown]
  - Varicella zoster virus infection [Unknown]
  - Ischaemic stroke [Unknown]
  - Chronic obstructive pulmonary disease [Unknown]
  - Cerebral infarction [Unknown]
  - Neuralgia [Unknown]

NARRATIVE: CASE EVENT DATE: 2017
